FAERS Safety Report 13522647 (Version 1)
Quarter: 2017Q2

REPORT INFORMATION
  Report Type: Spontaneous
  Country: FR (occurrence: FR)
  Receive Date: 20170508
  Receipt Date: 20170508
  Transmission Date: 20170830
  Serious: Yes (Other)
  Sender: FDA-Public Use
  Company Number: FR-BAYER-2017-081671

PATIENT
  Age: 82 Year
  Sex: Male

DRUGS (1)
  1. STIVARGA [Suspect]
     Active Substance: REGORAFENIB
     Indication: RECTAL ADENOCARCINOMA
     Dosage: UNK
     Dates: start: 201702

REACTIONS (3)
  - Angina unstable [None]
  - Palmar-plantar erythrodysaesthesia syndrome [None]
  - Electrocardiogram ST segment elevation [None]
